FAERS Safety Report 4405228-2 (Version None)
Quarter: 2004Q3

REPORT INFORMATION
  Report Type: 
  Country: None (occurrence: None)
  Receive Date: 20040722
  Receipt Date: 20040722
  Transmission Date: 20050211
  Serious: Yes (Hospitalization, Disabling)
  Sender: FDA-Public Use
  Company Number: None

PATIENT
  Sex: 0
  Weight: 65.7716 kg

DRUGS (7)
  1. ZOLOFT [Suspect]
     Indication: GENERALISED ANXIETY DISORDER
     Dosage: 100 MG DAILY ORAL
     Route: 048
     Dates: start: 20020815, end: 20040721
  2. KLONOPIN [Suspect]
     Indication: GENERALISED ANXIETY DISORDER
     Dosage: .25 3X DAILY ORAL
     Route: 048
     Dates: start: 20020815, end: 20040721
  3. PROZAC [Concomitant]
  4. XANAZ [Concomitant]
  5. BUSPAR [Concomitant]
  6. PAXIL [Concomitant]
  7. XANAX [Concomitant]

REACTIONS (10)
  - ABNORMAL DREAMS [None]
  - ANXIETY [None]
  - DEHYDRATION [None]
  - DIZZINESS [None]
  - DRUG WITHDRAWAL SYNDROME [None]
  - FIBROMYALGIA [None]
  - HEADACHE [None]
  - HEART RATE DECREASED [None]
  - HYPOTENSION [None]
  - MUSCLE TWITCHING [None]
